FAERS Safety Report 12099985 (Version 1)
Quarter: 2016Q1

REPORT INFORMATION
  Report Type: Spontaneous
  Country: US (occurrence: None)
  Receive Date: 20160219
  Receipt Date: 20160219
  Transmission Date: 20160526
  Serious: Yes (Disabling)
  Sender: FDA-Public Use
  Company Number: None

PATIENT
  Age: 15 Year
  Sex: Female
  Weight: 52.16 kg

DRUGS (6)
  1. ARMOUR THYROID [Suspect]
     Active Substance: THYROID, PORCINE
     Indication: HYPOTHYROIDISM
     Dosage: 1 PILL ONCE DAILY TAKEN BY MOUTH
     Route: 048
     Dates: start: 20160130, end: 20160216
  2. PROBIOTIC [Concomitant]
     Active Substance: PROBIOTICS NOS
  3. OREGANO OIL [Concomitant]
  4. ADRENAL CORTEX [Concomitant]
  5. MAGNESIUM [Concomitant]
     Active Substance: MAGNESIUM
  6. FISH OIL [Concomitant]
     Active Substance: FISH OIL

REACTIONS (8)
  - Nausea [None]
  - Irritability [None]
  - Headache [None]
  - Temperature intolerance [None]
  - Depressed mood [None]
  - Lethargy [None]
  - Abdominal pain [None]
  - Presyncope [None]

NARRATIVE: CASE EVENT DATE: 20160217
